FAERS Safety Report 4490360-8 (Version None)
Quarter: 2004Q3

REPORT INFORMATION
  Report Type: 
  Country: None (occurrence: None)
  Receive Date: 20040921
  Receipt Date: 20031216
  Transmission Date: 20050211
  Serious: Yes (Hospitalization)
  Sender: FDA-Public Use
  Company Number: 163-20785-03120464

PATIENT
  Age: 72 Year
  Sex: Male
  Weight: 73 kg

DRUGS (4)
  1. THALOMID [Suspect]
     Indication: MULTIPLE MYELOMA
     Dosage: 50 MG TO 150 MG, ORAL
     Route: 048
     Dates: start: 20020826
  2. PREDNISONE [Suspect]
     Indication: MULTIPLE MYELOMA
     Dosage: 25 MG, QOD, ORAL
     Route: 048
     Dates: start: 20020826
  3. MORPHINE SULFATE [Concomitant]
  4. ANTIBIOTIC [Concomitant]

REACTIONS (22)
  - ACTIVATED PARTIAL THROMBOPLASTIN TIME PROLONGED [None]
  - BLOOD ALBUMIN DECREASED [None]
  - BLOOD CALCIUM DECREASED [None]
  - BLOOD GLUCOSE INCREASED [None]
  - BLOOD POTASSIUM INCREASED [None]
  - BLOOD SODIUM DECREASED [None]
  - BLOOD UREA INCREASED [None]
  - BRAIN NATRIURETIC PEPTIDE INCREASED [None]
  - BREATH SOUNDS DECREASED [None]
  - CONFUSIONAL STATE [None]
  - CREPITATIONS [None]
  - DIARRHOEA [None]
  - HEART RATE IRREGULAR [None]
  - LETHARGY [None]
  - LUNG INFILTRATION [None]
  - MYOCLONUS [None]
  - OXYGEN SATURATION DECREASED [None]
  - PAIN [None]
  - PULMONARY FIBROSIS [None]
  - TROPONIN T INCREASED [None]
  - UPPER RESPIRATORY TRACT INFECTION [None]
  - WHITE BLOOD CELL COUNT DECREASED [None]
